FAERS Safety Report 6445016-9 (Version None)
Quarter: 2009Q4

REPORT INFORMATION
  Report Type: 
  Country: None (occurrence: None)
  Receive Date: 20091118
  Receipt Date: 20091111
  Transmission Date: 20100525
  Serious: Yes (Hospitalization)
  Sender: FDA-Public Use
  Company Number: FR-TEVA-215173ISR

PATIENT
  Sex: Male

DRUGS (11)
  1. FLUOROURACIL [Suspect]
     Indication: COLORECTAL CANCER METASTATIC
     Route: 040
     Dates: start: 20070430
  2. FLUOROURACIL [Suspect]
     Route: 041
     Dates: start: 20090430
  3. FOLINIC ACID [Suspect]
     Indication: COLORECTAL CANCER METASTATIC
     Dates: start: 20070430
  4. BEVACIZUMAB [Suspect]
     Indication: COLORECTAL CANCER METASTATIC
     Dates: start: 20070430
  5. IRINOTECAN HYDROCHLORIDE [Suspect]
     Dates: start: 20070430
  6. DIGOXIN [Concomitant]
     Indication: ARRHYTHMIA
     Route: 048
  7. FUROSEMIDE [Concomitant]
     Indication: ARRHYTHMIA
     Route: 048
  8. AMLODIPINE BESILATE [Concomitant]
     Indication: ARRHYTHMIA
     Route: 048
  9. CICLETANINE [Concomitant]
     Indication: ARRHYTHMIA
     Route: 048
  10. DIPYRIDAMOLE [Concomitant]
     Indication: ARRHYTHMIA
     Route: 048
  11. DARBEPOETIN ALFA [Concomitant]
     Indication: ANAEMIA
     Route: 042
     Dates: start: 20070811

REACTIONS (2)
  - ASTHENIA [None]
  - COLITIS [None]
